FAERS Safety Report 24089859 (Version 1)
Quarter: 2024Q3

REPORT INFORMATION
  Report Type: Spontaneous
  Country: CN (occurrence: CN)
  Receive Date: 20240715
  Receipt Date: 20240715
  Transmission Date: 20241017
  Serious: Yes (Life-Threatening, Other)
  Sender: STRIDES
  Company Number: None

PATIENT
  Age: 43 Year
  Sex: Female

DRUGS (22)
  1. PREDNISOLONE [Suspect]
     Active Substance: PREDNISOLONE
     Indication: Peripheral T-cell lymphoma unspecified
     Dosage: UNK, FIRST LINE CHEMOTHERAPY WITH P-CHOP REGIMEN
     Route: 065
  2. DOXORUBICIN [Suspect]
     Active Substance: DOXORUBICIN
     Indication: Peripheral T-cell lymphoma unspecified
     Dosage: UNK, THIRD LINE TREATMENT
     Route: 065
  3. METHOTREXATE [Suspect]
     Active Substance: METHOTREXATE
     Indication: Peripheral T-cell lymphoma unspecified
     Dosage: UNK, HOIGH DOSE
     Route: 065
  4. ETOPOSIDE [Suspect]
     Active Substance: ETOPOSIDE
     Indication: Peripheral T-cell lymphoma unspecified
     Dosage: UNK, THIRD LINE TREATMENT
     Route: 065
  5. PEGASPARGASE [Suspect]
     Active Substance: PEGASPARGASE
     Indication: Peripheral T-cell lymphoma unspecified
     Dosage: UNK, FIRST LINE CHEMOTHERAPY WITH P-CHOP REGIMEN
     Route: 065
  6. EPIRUBICIN [Suspect]
     Active Substance: EPIRUBICIN
     Indication: Peripheral T-cell lymphoma unspecified
     Dosage: UNK, FIRST LINE CHEMOTHERAPY WITH P-CHOP REGIMEN
     Route: 065
  7. CYCLOPHOSPHAMIDE [Suspect]
     Active Substance: CYCLOPHOSPHAMIDE
     Indication: Peripheral T-cell lymphoma unspecified
     Dosage: UNK, FIRST LINE CHEMOTHERAPY WITH P-CHOP REGIMEN
     Route: 065
  8. VINDESINE [Suspect]
     Active Substance: VINDESINE
     Indication: Peripheral T-cell lymphoma unspecified
     Dosage: UNK, FIRST LINE CHEMOTHERAPY WITH P-CHOP REGIMEN
     Route: 065
  9. GEMCITABINE [Suspect]
     Active Substance: GEMCITABINE
     Indication: Peripheral T-cell lymphoma unspecified
     Dosage: UNK, SECOND LINE TREATMENT WITH GDP REGIMEN
     Route: 065
  10. CISPLATIN [Suspect]
     Active Substance: CISPLATIN
     Indication: Peripheral T-cell lymphoma unspecified
     Dosage: UNK, SECOND LINE TREATMENT WITH GDP REGIMEN
     Route: 065
  11. DEXAMETHASONE [Suspect]
     Active Substance: DEXAMETHASONE
     Indication: Peripheral T-cell lymphoma unspecified
     Dosage: UNK, SECOND LINE TREATMENT WITH GDP REGIMEN
     Route: 065
  12. DEXAMETHASONE [Suspect]
     Active Substance: DEXAMETHASONE
     Dosage: UNK, THIRD LINE TREATMENT
     Route: 065
  13. DEXAMETHASONE [Suspect]
     Active Substance: DEXAMETHASONE
     Dosage: UNK, FIFTH LINE CHEMOTHERPAY
     Route: 065
  14. CYTARABINE [Suspect]
     Active Substance: CYTARABINE
     Indication: Peripheral T-cell lymphoma unspecified
     Dosage: UNK, THIRD LINE TREATMENT
     Route: 065
  15. CYTARABINE [Suspect]
     Active Substance: CYTARABINE
     Dosage: UNK, RECEIVED FOURTH LINE CHEMOTHERAPY
     Route: 065
  16. TUCIDINOSTAT [Suspect]
     Active Substance: TUCIDINOSTAT
     Indication: Peripheral T-cell lymphoma unspecified
     Dosage: 20 MILLIGRAM, EVERY 2 WEEKS, SECOND LINE TREATMENT
     Route: 048
  17. TUCIDINOSTAT [Suspect]
     Active Substance: TUCIDINOSTAT
     Dosage: 20 MILLIGRAM, EVERY 2 WEEKS, THIRD LINE TREATMENT
     Route: 048
  18. CLADRIBINE [Suspect]
     Active Substance: CLADRIBINE
     Indication: Peripheral T-cell lymphoma unspecified
     Dosage: UNK, FOURTH LINE CHEMOTHERAPY
     Route: 065
  19. THALIDOMIDE [Suspect]
     Active Substance: THALIDOMIDE
     Indication: Peripheral T-cell lymphoma unspecified
     Dosage: 25 MILLIGRAM, QD, FOURTH LINE CHEMOTHERAPY
     Route: 048
  20. BORTEZOMIB [Suspect]
     Active Substance: BORTEZOMIB
     Indication: Peripheral T-cell lymphoma unspecified
     Dosage: UNK, FIFTH LINE CHEMOTHERPAY
     Route: 065
  21. VENETOCLAX [Suspect]
     Active Substance: VENETOCLAX
     Indication: Peripheral T-cell lymphoma unspecified
     Dosage: UNK, FIFTH LINE CHEMOTHERPAY
     Route: 065
  22. DECITABINE [Suspect]
     Active Substance: DECITABINE
     Indication: Peripheral T-cell lymphoma unspecified
     Dosage: UNK
     Route: 065

REACTIONS (6)
  - Malignant neoplasm progression [Unknown]
  - Drug ineffective [Unknown]
  - Myelosuppression [Unknown]
  - Pneumonia [Unknown]
  - Haematological infection [Unknown]
  - Off label use [Unknown]
